FAERS Safety Report 13782420 (Version 1)
Quarter: 2017Q3

REPORT INFORMATION
  Report Type: Spontaneous
  Country: US (occurrence: US)
  Receive Date: 20170724
  Receipt Date: 20170724
  Transmission Date: 20171127
  Serious: No
  Sender: FDA-Public Use
  Company Number: US-PRINSTON PHARMACEUTICAL INC.-2016PRN00160

PATIENT
  Age: 65 Year
  Sex: Female
  Weight: 81.18 kg

DRUGS (4)
  1. LOSARTAN POTASSIUM. [Suspect]
     Active Substance: LOSARTAN POTASSIUM
     Indication: CARDIAC VALVE DISEASE
     Dosage: 50 MG, 1X/DAY
     Route: 048
     Dates: start: 201606, end: 20160624
  2. VITAMIN D [Concomitant]
     Active Substance: CHOLECALCIFEROL
  3. CALCIUM SUPPLEMENT [Concomitant]
     Active Substance: CALCIUM
  4. LOSARTAN POTASSIUM. [Suspect]
     Active Substance: LOSARTAN POTASSIUM
     Indication: BLOOD PRESSURE ABNORMAL
     Dosage: 50 MG, 1X/DAY
     Route: 048
     Dates: start: 20160627, end: 20160628

REACTIONS (2)
  - Blood pressure decreased [Unknown]
  - Fatigue [Not Recovered/Not Resolved]

NARRATIVE: CASE EVENT DATE: 201606
